FAERS Safety Report 4898171-6 (Version None)
Quarter: 2006Q1

REPORT INFORMATION
  Report Type: 
  Country: None (occurrence: None)
  Receive Date: 20060127
  Receipt Date: 20060116
  Transmission Date: 20060701
  Serious: Yes (Hospitalization)
  Sender: FDA-Public Use
  Company Number: 2006-00169

PATIENT
  Age: 28 Year
  Sex: Female
  Weight: 127 kg

DRUGS (2)
  1. LOW-OGESTREL (WATSON LABORATORIES) UNKNOWN (NORGESTREL 0.30MG, ETHINYL [Suspect]
     Indication: MENSTRUATION IRREGULAR
     Dosage: 1 TABLET, DAILY, ORAL
     Route: 048
     Dates: start: 20051206, end: 20051216
  2. KETOPROFEN [Concomitant]

REACTIONS (5)
  - ANAEMIA [None]
  - CEREBROVASCULAR ACCIDENT [None]
  - NAUSEA [None]
  - OFF LABEL USE [None]
  - PULMONARY EMBOLISM [None]
